FAERS Safety Report 8158750-X (Version None)
Quarter: 2012Q1

REPORT INFORMATION
  Report Type: 
  Country: None (occurrence: None)
  Receive Date: 20120223
  Receipt Date: 20120219
  Transmission Date: 20120608
  Serious: Yes (Other)
  Sender: FDA-Public Use
  Company Number: IS-PFIZER INC-2012044297

PATIENT
  Age: 30 Year
  Sex: Female

DRUGS (1)
  1. LYRICA [Suspect]

REACTIONS (7)
  - DRUG DEPENDENCE [None]
  - HANGOVER [None]
  - HEADACHE [None]
  - ANXIETY [None]
  - WITHDRAWAL SYNDROME [None]
  - TREMOR [None]
  - HYPERHIDROSIS [None]
